FAERS Safety Report 19370612 (Version 1)
Quarter: 2021Q2

REPORT INFORMATION
  Report Type: Spontaneous
  Country: US (occurrence: US)
  Receive Date: 20210604
  Receipt Date: 20210604
  Transmission Date: 20210717
  Serious: Yes (Other)
  Sender: FDA-Public Use
  Company Number: US-AUROBINDO-AUR-APL-2021-022306

PATIENT
  Age: 71 Year
  Sex: Female

DRUGS (1)
  1. PITAVASTATIN. [Suspect]
     Active Substance: PITAVASTATIN CALCIUM
     Indication: DYSLIPIDAEMIA
     Dosage: UNK
     Route: 065

REACTIONS (8)
  - Peripheral ischaemia [Unknown]
  - Asthenia [Unknown]
  - Myalgia [Unknown]
  - Peripheral swelling [Unknown]
  - Antiphospholipid syndrome [Unknown]
  - Lupus-like syndrome [Unknown]
  - Pallor [Unknown]
  - Paraesthesia [Unknown]
